FAERS Safety Report 13242959 (Version 1)
Quarter: 2017Q1

REPORT INFORMATION
  Report Type: Spontaneous
  Country: SE (occurrence: SE)
  Receive Date: 20170217
  Receipt Date: 20170217
  Transmission Date: 20170428
  Serious: Yes (Other)
  Sender: FDA-Public Use
  Company Number: SE-PFIZER INC-2017068576

PATIENT
  Age: 73 Year
  Sex: Female

DRUGS (2)
  1. CORDARONE [Suspect]
     Active Substance: AMIODARONE HYDROCHLORIDE
     Indication: ATRIAL FIBRILLATION
     Dosage: 200 MG, 1X/DAY
     Route: 048
     Dates: start: 20150622, end: 20161116
  2. WARAN [Concomitant]
     Active Substance: WARFARIN SODIUM
     Dosage: UNK

REACTIONS (4)
  - Thyroiditis [Not Recovered/Not Resolved]
  - Cough [Unknown]
  - Fatigue [Unknown]
  - Alopecia [Unknown]

NARRATIVE: CASE EVENT DATE: 20151222
